FAERS Safety Report 9436188 (Version 1)
Quarter: 2013Q3

REPORT INFORMATION
  Report Type: Spontaneous
  Country: US (occurrence: US)
  Receive Date: 20130801
  Receipt Date: 20130801
  Transmission Date: 20140515
  Serious: Yes (Death, Other)
  Sender: FDA-Public Use
  Company Number: US-RB-056744-13

PATIENT
  Age: 35 Year
  Sex: Male

DRUGS (1)
  1. SUBOXONE FILM [Suspect]
     Indication: DRUG DEPENDENCE
     Dosage: SUBOXONE FILM;
     Route: 060
     Dates: end: 20130616

REACTIONS (3)
  - Hepatic cirrhosis [Unknown]
  - Drug abuse [Unknown]
  - Death [Fatal]
